FAERS Safety Report 15839551 (Version 1)
Quarter: 2019Q1

REPORT INFORMATION
  Report Type: Spontaneous
  Country: CN (occurrence: CN)
  Receive Date: 20190117
  Receipt Date: 20190117
  Transmission Date: 20190417
  Serious: Yes (Other)
  Sender: FDA-Public Use
  Company Number: CN-BAUSCH-BL-2019-000610

PATIENT
  Age: 69 Year
  Sex: Male

DRUGS (11)
  1. TOBRAMYCIN. [Suspect]
     Active Substance: TOBRAMYCIN
     Indication: CONJUNCTIVITIS
     Route: 047
  2. CHLORAMPHENICOL [Suspect]
     Active Substance: CHLORAMPHENICOL
     Indication: EYE DISORDER
  3. CORTISONE [Suspect]
     Active Substance: CORTISONE\HYDROCORTISONE
     Indication: CONJUNCTIVITIS
     Route: 047
     Dates: start: 2009
  4. ERYTHROMYCIN EYE OINTMENT [Suspect]
     Active Substance: ERYTHROMYCIN
     Indication: CONJUNCTIVITIS
     Dosage: EVERY NIGHT
     Route: 047
     Dates: start: 2009
  5. CHLORAMPHENICOL [Suspect]
     Active Substance: CHLORAMPHENICOL
     Indication: CONJUNCTIVITIS
  6. LEVOFLOXACIN HYDROCHLORIDE [Suspect]
     Active Substance: LEVOFLOXACIN HYDROCHLORIDE
     Route: 047
     Dates: start: 2014
  7. DEXAMETHASONE. [Suspect]
     Active Substance: DEXAMETHASONE
     Indication: CONJUNCTIVITIS
     Dosage: EYE OINTMENT
     Route: 047
     Dates: start: 2009
  8. ERYTHROMYCIN EYE OINTMENT [Suspect]
     Active Substance: ERYTHROMYCIN
     Dosage: RESTARTED AGAIN; EVERY NIGHT
     Route: 047
     Dates: start: 2009, end: 2009
  9. CHLORAMPHENICOL [Suspect]
     Active Substance: CHLORAMPHENICOL
     Indication: FOREIGN BODY SENSATION IN EYES
     Route: 047
     Dates: start: 2009
  10. LEVOFLOXACIN HYDROCHLORIDE [Suspect]
     Active Substance: LEVOFLOXACIN HYDROCHLORIDE
     Indication: CONJUNCTIVITIS
     Dosage: TO THE EYES
     Route: 047
     Dates: start: 2009, end: 2009
  11. SODIUM CROMOGLYCATE [Suspect]
     Active Substance: CROMOLYN SODIUM
     Indication: CONJUNCTIVITIS
     Route: 047
     Dates: start: 2009

REACTIONS (3)
  - Drug ineffective [Recovered/Resolved]
  - Conjunctivitis [Recovered/Resolved]
  - Prescription drug used without a prescription [Recovered/Resolved]

NARRATIVE: CASE EVENT DATE: 2009
